FAERS Safety Report 4555314-1 (Version None)
Quarter: 2004Q4

REPORT INFORMATION
  Report Type: 
  Country: None (occurrence: None)
  Receive Date: 20041227
  Receipt Date: 20031209
  Transmission Date: 20050328
  Serious: Yes (Other)
  Sender: FDA-Public Use
  Company Number: US-JNJFOC-20031202246

PATIENT
  Sex: Male

DRUGS (4)
  1. REOPRO [Suspect]
     Indication: DRUG USE FOR UNKNOWN INDICATION
     Dosage: 8.5 INFUSION
  2. HEPARIN [Concomitant]
  3. PLAVIX [Concomitant]
  4. ASPIRIN [Concomitant]

REACTIONS (2)
  - PLATELET COUNT DECREASED [None]
  - RETROPERITONEAL HAEMORRHAGE [None]
